FAERS Safety Report 9401103 (Version 1)
Quarter: 2013Q3

REPORT INFORMATION
  Report Type: Report from Study
  Country: JP (occurrence: JP)
  Receive Date: 20130715
  Receipt Date: 20130715
  Transmission Date: 20140515
  Serious: Yes (Hospitalization)
  Sender: FDA-Public Use
  Company Number: JP-VERTEX PHARMACEUTICALS INC-AE-2012-010611

PATIENT
  Age: 61 Year
  Sex: Female

DRUGS (6)
  1. VX-950 (TELAPREVIR) [Suspect]
     Indication: CHRONIC HEPATITIS C
     Dosage: 1500 MG, QD
     Route: 048
     Dates: start: 20120614
  2. REBETOL [Suspect]
     Indication: CHRONIC HEPATITIS C
     Dosage: 600 MG, QD
     Route: 048
     Dates: start: 20120614, end: 20120913
  3. REBETOL [Suspect]
     Dosage: 200 MG, QD
     Route: 048
  4. PEGINTRON [Suspect]
     Indication: CHRONIC HEPATITIS C
     Dosage: 1.5 ?G/KG, QW
     Route: 058
     Dates: start: 20120614
  5. URSO [Concomitant]
     Dosage: 600 MG, QD
     Route: 048
  6. ZYLORIC [Concomitant]
     Dosage: 200 MG, QD
     Route: 048

REACTIONS (1)
  - Rash [Recovered/Resolved]
